FAERS Safety Report 4689438-5 (Version None)
Quarter: 2005Q2

REPORT INFORMATION
  Report Type: 
  Country: None (occurrence: None)
  Receive Date: 20050311
  Receipt Date: 20050311
  Transmission Date: 20051028
  Serious: No
  Sender: FDA-Public Use
  Company Number: None

PATIENT

DRUGS (1)
  1. GLYCOLAX [Suspect]
     Indication: CONSTIPATION
     Dosage: 17Q/ 4MG @ HS

REACTIONS (2)
  - CHANGE OF BOWEL HABIT [None]
  - DRUG INEFFECTIVE [None]
